FAERS Safety Report 12275028 (Version 1)
Quarter: 2016Q2

REPORT INFORMATION
  Report Type: Spontaneous
  Country: US (occurrence: US)
  Receive Date: 20160415
  Receipt Date: 20160415
  Transmission Date: 20160815
  Serious: No
  Sender: FDA-Public Use
  Company Number: US-ALLERGAN-1523943US

PATIENT
  Age: 81 Year
  Sex: Male
  Weight: 99.77 kg

DRUGS (2)
  1. LUMIGAN [Suspect]
     Active Substance: BIMATOPROST
     Dosage: 2 GTT, QD
     Route: 047
     Dates: start: 201511
  2. LUMIGAN [Suspect]
     Active Substance: BIMATOPROST
     Indication: GLAUCOMA
     Dosage: 2 GTT, QD
     Route: 047
     Dates: start: 201511, end: 201511

REACTIONS (2)
  - Spinocerebellar ataxia [Not Recovered/Not Resolved]
  - Conjunctival hyperaemia [Not Recovered/Not Resolved]

NARRATIVE: CASE EVENT DATE: 201511
